FAERS Safety Report 14301859 (Version 1)
Quarter: 2017Q4

REPORT INFORMATION
  Report Type: Not Available
  Country: None (occurrence: US)
  Receive Date: 20171219
  Receipt Date: 20171219
  Transmission Date: 20180321
  Serious: No
  Sender: FDA-Public Use
  Company Number: US-AKORN-75307

PATIENT
  Age: 66 Year
  Sex: Female

DRUGS (1)
  1. ZIOPTAN [Suspect]
     Active Substance: TAFLUPROST

REACTIONS (4)
  - Ocular hyperaemia [None]
  - Eye pruritus [None]
  - Dry eye [None]
  - Ocular icterus [None]
